FAERS Safety Report 5928869-X (Version None)
Quarter: 2008Q4

REPORT INFORMATION
  Report Type: 
  Country: None (occurrence: None)
  Receive Date: 20081024
  Receipt Date: 20081013
  Transmission Date: 20090506
  Serious: Yes (Other)
  Sender: FDA-Public Use
  Company Number: US-JNJFOC-20081001562

PATIENT
  Sex: Female
  Weight: 140.16 kg

DRUGS (8)
  1. REMICADE [Suspect]
     Dosage: WEEK 2
     Route: 042
  2. REMICADE [Suspect]
     Indication: COLITIS ULCERATIVE
     Dosage: WEEK 0
     Route: 042
  3. ASACOL [Concomitant]
  4. PREDNISONE TAB [Concomitant]
  5. VICODIN [Concomitant]
  6. DICYCLOMINE [Concomitant]
  7. BENADRYL [Concomitant]
     Indication: PREMEDICATION
  8. TYLENOL [Concomitant]
     Indication: PREMEDICATION

REACTIONS (9)
  - ABASIA [None]
  - APHASIA [None]
  - ARTHRALGIA [None]
  - BONE PAIN [None]
  - CHEST PAIN [None]
  - DIZZINESS [None]
  - MYALGIA [None]
  - NAUSEA [None]
  - TRISMUS [None]
